FAERS Safety Report 16306393 (Version 1)
Quarter: 2019Q2

REPORT INFORMATION
  Report Type: Report from Study
  Country: US (occurrence: US)
  Receive Date: 20190513
  Receipt Date: 20190513
  Transmission Date: 20190711
  Serious: Yes (Death)
  Sender: FDA-Public Use
  Company Number: US-ASTRAZENECA-2019SE71949

PATIENT
  Age: 30590 Day
  Sex: Female
  Weight: 50.8 kg

DRUGS (1)
  1. IMFINZI [Suspect]
     Active Substance: DURVALUMAB
     Route: 042
     Dates: start: 20190411

REACTIONS (1)
  - Death [Fatal]

NARRATIVE: CASE EVENT DATE: 20190508
